FAERS Safety Report 15728622 (Version 1)
Quarter: 2018Q4

REPORT INFORMATION
  Report Type: Other
  Country: ES (occurrence: ES)
  Receive Date: 20181217
  Receipt Date: 20181217
  Transmission Date: 20190205
  Serious: Yes (Other)
  Sender: FDA-Public Use
  Company Number: ES-APOTEX-2018AP027035

PATIENT
  Age: 77 Year
  Sex: Male
  Weight: 71 kg

DRUGS (5)
  1. OMEPRAZOL                          /00661201/ [Concomitant]
     Active Substance: OMEPRAZOLE
     Indication: LARYNGITIS
     Dosage: 1 DF, BID (TWICE A DAY)
     Route: 048
     Dates: start: 20121106
  2. BIMATOPROST;TIMOLOL [Concomitant]
     Indication: GLAUCOMA
     Dosage: UNK
     Route: 065
  3. LOSARTAN. [Concomitant]
     Active Substance: LOSARTAN
     Indication: ESSENTIAL HYPERTENSION
     Dosage: 75 MG, QD (ONCE A DAY)
     Route: 048
     Dates: start: 20120413
  4. PRAVASTATINA CINFA [Suspect]
     Active Substance: PRAVASTATIN SODIUM
     Indication: TYPE IIA HYPERLIPIDAEMIA
     Dosage: 1 DF, QD (ONCE A DAY)
     Route: 048
     Dates: start: 20170926, end: 20180822
  5. DUTASTERIDE;TAMSULOSIN [Concomitant]
     Indication: PROSTATITIS
     Dosage: 1 DF, QD (ONCE A DAY)
     Route: 048
     Dates: start: 20110819

REACTIONS (2)
  - Myalgia [Not Recovered/Not Resolved]
  - Tendon rupture [Not Recovered/Not Resolved]

NARRATIVE: CASE EVENT DATE: 20180822
